FAERS Safety Report 18798680 (Version 1)
Quarter: 2021Q1

REPORT INFORMATION
  Report Type: Spontaneous
  Country: FI (occurrence: FI)
  Receive Date: 20210128
  Receipt Date: 20210128
  Transmission Date: 20210419
  Serious: Yes (Disabling)
  Sender: FDA-Public Use
  Company Number: FI-NALPROPION PHARMACEUTICALS INC.-2021-012137

PATIENT

DRUGS (4)
  1. MYSIMBA (NALTREXONE HCL/BUPROPION HCL) PROLONGED?RELEASE TABLETS [Suspect]
     Active Substance: BUPROPION HYDROCHLORIDE\NALTREXONE HYDROCHLORIDE
     Indication: WEIGHT ABNORMAL
     Dosage: UNKNOWN DOSE AND FREQUENCY
     Route: 048
     Dates: start: 202002
  2. MYSIMBA (NALTREXONE HCL/BUPROPION HCL) PROLONGED?RELEASE TABLETS [Suspect]
     Active Substance: BUPROPION HYDROCHLORIDE\NALTREXONE HYDROCHLORIDE
     Dosage: 4 DF, QD
     Route: 048
     Dates: end: 202010
  3. ESCITALOPRAM RATIOPHARM [Concomitant]
     Active Substance: ESCITALOPRAM OXALATE
     Indication: DEPRESSION
     Dosage: 10 MG, QD
     Route: 048
     Dates: start: 2011
  4. HEINIX [Concomitant]
     Active Substance: CETIRIZINE HYDROCHLORIDE
     Indication: URTICARIA CHRONIC
     Dosage: 10 MG, QD
     Dates: start: 2012

REACTIONS (5)
  - Hypersomnia [Not Recovered/Not Resolved]
  - Sleep talking [Not Recovered/Not Resolved]
  - Loss of personal independence in daily activities [Not Recovered/Not Resolved]
  - Impaired work ability [Not Recovered/Not Resolved]
  - Tremor [Not Recovered/Not Resolved]

NARRATIVE: CASE EVENT DATE: 202002
